FAERS Safety Report 17020038 (Version 1)
Quarter: 2019Q4

REPORT INFORMATION
  Report Type: Spontaneous
  Country: US (occurrence: US)
  Receive Date: 20191112
  Receipt Date: 20191112
  Transmission Date: 20200122
  Serious: Yes (Other)
  Sender: FDA-Public Use
  Company Number: US-MICRO LABS LIMITED-ML2019-02974

PATIENT
  Age: 71 Year
  Sex: Female

DRUGS (1)
  1. TRANEXAMIC ACID. [Suspect]
     Active Substance: TRANEXAMIC ACID
     Dosage: LOADING DOSE OF 40 MG/KG WITH AN INFUSION DOSE OF 1 MG/KG/HR
     Route: 042

REACTIONS (1)
  - Atrial fibrillation [Unknown]
